FAERS Safety Report 17432488 (Version 2)
Quarter: 2020Q1

REPORT INFORMATION
  Report Type: Report from Study
  Country: US (occurrence: US)
  Receive Date: 20200218
  Receipt Date: 20200226
  Transmission Date: 20200409
  Serious: Yes (Hospitalization)
  Sender: FDA-Public Use
  Company Number: US-EXELIXIS-CABO-20026871

PATIENT
  Sex: Female

DRUGS (2)
  1. CABOMETYX [Suspect]
     Active Substance: CABOZANTINIB S-MALATE
     Indication: MALIGNANT RESPIRATORY TRACT NEOPLASM
     Dosage: 40 MG QD(NO FOOD 2 HRS PRIOR AND 1 HR AFTER)
     Dates: start: 20200102, end: 20200209
  2. CABOMETYX [Suspect]
     Active Substance: CABOZANTINIB S-MALATE
     Dosage: 40 MG QD(NO FOOD 2 HRS PRIOR AND 1 HR AFTER)
     Dates: start: 20200213

REACTIONS (5)
  - Blood pressure systolic increased [Unknown]
  - Blood creatinine increased [Unknown]
  - Nephrolithiasis [Unknown]
  - Off label use [Unknown]
  - Decreased appetite [Unknown]
